FAERS Safety Report 10221019 (Version 1)
Quarter: 2014Q2

REPORT INFORMATION
  Report Type: Spontaneous
  Country: US (occurrence: None)
  Receive Date: 20140605
  Receipt Date: 20140605
  Transmission Date: 20141212
  Serious: Yes (Death)
  Sender: FDA-Public Use
  Company Number: None

PATIENT
  Age: 50 Year
  Sex: Male
  Weight: 98 kg

DRUGS (2)
  1. CYTARABINE [Suspect]
     Dates: start: 20140508
  2. DAUNORUBICIN [Suspect]
     Dates: start: 20140504

REACTIONS (4)
  - Blood bilirubin increased [None]
  - Venoocclusive disease [None]
  - Drug ineffective [None]
  - General physical health deterioration [None]
